FAERS Safety Report 26108265 (Version 1)
Quarter: 2025Q4

REPORT INFORMATION
  Report Type: Spontaneous
  Country: US (occurrence: None)
  Receive Date: 20251201
  Receipt Date: 20251201
  Transmission Date: 20260117
  Serious: Yes (unspecified)
  Sender: FDA-CTU
  Company Number: None

PATIENT
  Age: 13 Month
  Sex: Female
  Weight: 6.75 kg

DRUGS (4)
  1. DIPHENHYDRAMINE [Suspect]
     Active Substance: DIPHENHYDRAMINE
     Indication: Croup infectious
     Dates: start: 20221228, end: 20230130
  2. VITAMINS [Concomitant]
     Active Substance: VITAMINS
  3. Immuno-therapy drops for allergies [Concomitant]
  4. None of time of Benadryl [Concomitant]

REACTIONS (1)
  - Myoclonic epilepsy [None]

NARRATIVE: CASE EVENT DATE: 20221228
